FAERS Safety Report 6267881-0 (Version None)
Quarter: 2009Q3

REPORT INFORMATION
  Report Type: 
  Country: None (occurrence: None)
  Receive Date: 20090714
  Receipt Date: 20080929
  Transmission Date: 20100115
  Serious: No
  Sender: FDA-Public Use
  Company Number: JP-AVENTIS-200811184JP

PATIENT
  Age: 70 Year
  Sex: Male
  Weight: 43 kg

DRUGS (12)
  1. LANTUS [Suspect]
     Indication: DIABETES MELLITUS
     Dosage: DOSE: 6 UNITS/DAY
     Route: 058
     Dates: start: 20080404, end: 20080406
  2. LANTUS [Suspect]
     Dosage: DOSE: 6 UNITS
     Route: 058
     Dates: start: 20080408, end: 20080409
  3. AMARYL [Concomitant]
     Indication: DIABETES MELLITUS
     Dosage: DOSE: 1 TABLET
     Route: 048
     Dates: start: 20070105
  4. YOUCOBAL                           /00324901/ [Concomitant]
     Dosage: DOSE: 1 TABLET
     Route: 048
     Dates: start: 20070105
  5. ALINAMIN F                         /00257801/ [Concomitant]
     Dosage: DOSE: 1 TABLET
     Route: 048
     Dates: start: 20070105
  6. MELBIN                             /00082702/ [Concomitant]
     Indication: DIABETES MELLITUS
     Dosage: DOSE: 1 TABLET
     Route: 048
     Dates: start: 20070105
  7. ATELEC [Concomitant]
     Indication: HYPERTENSION
     Dosage: DOSE: 1 TABLET
     Route: 048
     Dates: start: 20070105
  8. ASPIRIN [Concomitant]
     Indication: CEREBRAL INFARCTION
     Dosage: DOSE: 1 TABLET
     Route: 048
     Dates: start: 20070105
  9. GLUCOBAY [Concomitant]
     Indication: DIABETES MELLITUS
     Dosage: DOSE: 1 TABLET
     Route: 048
     Dates: start: 20070105
  10. CARDENALIN [Concomitant]
  11. METHYCOBAL                         /00056201/ [Concomitant]
  12. SUCRALFATE [Concomitant]

REACTIONS (1)
  - CONFUSIONAL STATE [None]
